FAERS Safety Report 4855140-X (Version None)
Quarter: 2005Q4

REPORT INFORMATION
  Report Type: 
  Country: None (occurrence: None)
  Receive Date: 20051214
  Receipt Date: 20051122
  Transmission Date: 20060501
  Serious: Yes (Hospitalization, Other)
  Sender: FDA-Public Use
  Company Number: 2005-US-01304

PATIENT
  Age: 39 Year
  Sex: Female

DRUGS (1)
  1. CLOZAPINE [Suspect]
     Dosage: 37.5 MG, QD, ORAL
     Route: 048
     Dates: start: 20010701, end: 20051101

REACTIONS (1)
  - OESOPHAGEAL RUPTURE [None]
